FAERS Safety Report 10176246 (Version 2)
Quarter: 2014Q2

REPORT INFORMATION
  Report Type: Spontaneous
  Country: US (occurrence: None)
  Receive Date: 20140514
  Receipt Date: 20140520
  Transmission Date: 20141212
  Serious: Yes (Hospitalization, Other)
  Sender: FDA-Public Use
  Company Number: AUR-APL-2014-04966

PATIENT
  Age: 60 Year
  Sex: Female
  Weight: 81.65 kg

DRUGS (11)
  1. ALENDRONIC ACID [Suspect]
     Indication: BONE DISORDER
     Route: 048
     Dates: start: 20140329, end: 20140405
  2. ALENDRONIC ACID [Suspect]
     Indication: FRACTURE
     Route: 048
     Dates: start: 20140329, end: 20140405
  3. ASACOL (MESALAZINE) MODIFIED-RELEASE TABLET, 400 MG [Concomitant]
  4. CALCIUM (CALCIUM) [Concomitant]
  5. PLAQUENIL (HYDROXYCHLOROQUINE PHOSPHATE) [Concomitant]
  6. CLARITIN (GLICLAZIDE) [Concomitant]
  7. PREDNISONE (PREDNISONE) [Concomitant]
  8. TYLENOL (PARACETAMOL) [Concomitant]
  9. DIGOXIN (DIGOXIN) [Concomitant]
  10. GABAPENTIN (GABAPENTIN) [Concomitant]
  11. PRILOSEC (OMEPRAZOLE) [Concomitant]

REACTIONS (30)
  - Irritability [None]
  - Flatulence [None]
  - Abdominal distension [None]
  - Nausea [None]
  - Foaming at mouth [None]
  - Oral discomfort [None]
  - Visual acuity reduced [None]
  - Injury [None]
  - Dysphagia [None]
  - Thirst [None]
  - Dysgeusia [None]
  - Feeling of body temperature change [None]
  - Agitation [None]
  - Restlessness [None]
  - Insomnia [None]
  - Toothache [None]
  - Diarrhoea [None]
  - Burning sensation [None]
  - Rectal haemorrhage [None]
  - Asthenia [None]
  - Haematemesis [None]
  - Diarrhoea [None]
  - Loss of consciousness [None]
  - Syncope [None]
  - Fall [None]
  - Headache [None]
  - Dehydration [None]
  - Pyrexia [None]
  - Nervousness [None]
  - Dizziness [None]
